FAERS Safety Report 25709438 (Version 1)
Quarter: 2025Q3

REPORT INFORMATION
  Report Type: Spontaneous
  Country: EU (occurrence: EU)
  Receive Date: 20250821
  Receipt Date: 20250821
  Transmission Date: 20251021
  Serious: Yes (Hospitalization)
  Sender: ALEXION PHARMACEUTICALS
  Company Number: None

PATIENT
  Age: 79 Year
  Sex: Male
  Weight: 119 kg

DRUGS (10)
  1. XIGDUO XR [Suspect]
     Active Substance: DAPAGLIFLOZIN PROPANEDIOL\METFORMIN HYDROCHLORIDE
     Indication: Type 2 diabetes mellitus
     Dosage: 1 MATIN ET 1 SOIR EN CONTINUE
     Dates: start: 20250507, end: 20250721
  2. TRULICITY [Concomitant]
     Active Substance: DULAGLUTIDE
  3. TOUJEO [Concomitant]
     Active Substance: INSULIN GLARGINE
  4. ATORVASTATIN [Concomitant]
     Active Substance: ATORVASTATIN
  5. IRBESARTAN [Concomitant]
     Active Substance: IRBESARTAN
  6. KARDEGIC [Concomitant]
     Active Substance: ASPIRIN DL-LYSINE
  7. GLICLAZIDE [Concomitant]
     Active Substance: GLICLAZIDE
  8. PROBIOTICS NOS [Concomitant]
     Active Substance: PROBIOTICS NOS
  9. TRIMEPRAZINE [Concomitant]
     Active Substance: TRIMEPRAZINE
  10. PREGABALIN [Concomitant]
     Active Substance: PREGABALIN

REACTIONS (2)
  - Urinary tract infection [Recovered/Resolved]
  - Escherichia bacteraemia [Recovered/Resolved]

NARRATIVE: CASE EVENT DATE: 20250509
